FAERS Safety Report 16997478 (Version 1)
Quarter: 2019Q4

REPORT INFORMATION
  Report Type: Spontaneous
  Country: CA (occurrence: CA)
  Receive Date: 20191106
  Receipt Date: 20191106
  Transmission Date: 20200122
  Serious: Yes (Other)
  Sender: FDA-Public Use
  Company Number: CA-TEVA-2019-CA-1131530

PATIENT
  Age: 58 Year
  Sex: Male

DRUGS (21)
  1. EMTRICITABINE/TENOFOVIR DISOPROXIL FUMARATE [Concomitant]
     Active Substance: EMTRICITABINE\TENOFOVIR DISOPROXIL FUMARATE
     Route: 065
  2. BICALUTAMIDE. [Interacting]
     Active Substance: BICALUTAMIDE
     Indication: METASTASES TO BONE
     Route: 065
  3. DOLUTEGRAVIR [Interacting]
     Active Substance: DOLUTEGRAVIR
     Indication: HIV INFECTION
     Route: 065
  4. RITONAVIR. [Interacting]
     Active Substance: RITONAVIR
     Route: 065
  5. ETRAVIRINE [Interacting]
     Active Substance: ETRAVIRINE
     Route: 065
  6. LEUPROLIDE ACETATE. [Interacting]
     Active Substance: LEUPROLIDE ACETATE
     Indication: PROSTATE CANCER
     Route: 065
  7. LEUPROLIDE ACETATE. [Interacting]
     Active Substance: LEUPROLIDE ACETATE
     Indication: METASTASES TO BONE
     Route: 065
  8. ELIGARD [Interacting]
     Active Substance: LEUPROLIDE ACETATE
     Indication: PROSTATE CANCER METASTATIC
     Dosage: POWDER FOR SUSPENSION, SUSTAINEDRELEASE
     Route: 065
  9. RALTEGRAVIR. [Concomitant]
     Active Substance: RALTEGRAVIR
     Indication: HIV INFECTION
     Route: 065
  10. EMTRICITABINE [Concomitant]
     Active Substance: EMTRICITABINE
  11. BICALUTAMIDE. [Suspect]
     Active Substance: BICALUTAMIDE
     Indication: PROSTATE CANCER
     Route: 065
  12. ENZALUTAMIDE [Interacting]
     Active Substance: ENZALUTAMIDE
     Indication: PROSTATE CANCER
     Route: 065
  13. RITONAVIR. [Interacting]
     Active Substance: RITONAVIR
     Indication: HIV INFECTION
     Route: 065
  14. DARUNAVIR [Concomitant]
     Active Substance: DARUNAVIR
     Route: 065
  15. TIVICAY [Concomitant]
     Active Substance: DOLUTEGRAVIR SODIUM
  16. DARUNAVIR [Interacting]
     Active Substance: DARUNAVIR
     Route: 065
  17. DARUNAVIR [Interacting]
     Active Substance: DARUNAVIR
     Indication: HIV INFECTION
     Route: 065
  18. ETRAVIRINE [Interacting]
     Active Substance: ETRAVIRINE
     Indication: HIV INFECTION
     Route: 065
  19. EMTRICITABINE/TENOFOVIR DISOPROXIL FUMARATE [Concomitant]
     Active Substance: EMTRICITABINE\TENOFOVIR DISOPROXIL FUMARATE
     Indication: HIV INFECTION
     Route: 065
  20. INTELENCE [Concomitant]
     Active Substance: ETRAVIRINE
  21. TENOFOVIR [Concomitant]
     Active Substance: TENOFOVIR

REACTIONS (4)
  - Prostate cancer [Recovering/Resolving]
  - Drug interaction [Recovering/Resolving]
  - Drug level decreased [Recovering/Resolving]
  - Drug ineffective [Recovering/Resolving]
